FAERS Safety Report 7230996-4 (Version None)
Quarter: 2011Q1

REPORT INFORMATION
  Report Type: 
  Country: None (occurrence: None)
  Receive Date: 20110118
  Receipt Date: 20110106
  Transmission Date: 20110831
  Serious: Yes (Other)
  Sender: FDA-Public Use
  Company Number: US-ROCHE-751886

PATIENT
  Sex: Male

DRUGS (1)
  1. ACCUTANE [Suspect]
     Route: 065
     Dates: start: 19990901, end: 20000301

REACTIONS (1)
  - INJURY [None]
